FAERS Safety Report 7552569-6 (Version None)
Quarter: 2011Q2

REPORT INFORMATION
  Report Type: 
  Country: None (occurrence: None)
  Receive Date: 20110616
  Receipt Date: 20110609
  Transmission Date: 20111010
  Serious: Yes (Death, Other)
  Sender: FDA-Public Use
  Company Number: JP-CELGENEUS-087-21660-11061543

PATIENT
  Sex: Female
  Weight: 55 kg

DRUGS (1)
  1. ABRAXANE [Suspect]
     Indication: BREAST CANCER METASTATIC
     Dosage: 400 MILLIGRAM
     Route: 065
     Dates: start: 20101029, end: 20101029

REACTIONS (6)
  - BLOOD ALBUMIN DECREASED [None]
  - FEBRILE NEUTROPENIA [None]
  - NEUTROPHIL COUNT DECREASED [None]
  - C-REACTIVE PROTEIN INCREASED [None]
  - WHITE BLOOD CELL COUNT DECREASED [None]
  - PNEUMONIA [None]
